FAERS Safety Report 9295140 (Version 1)
Quarter: 2013Q1

REPORT INFORMATION
  Report Type: Spontaneous
  Country: US (occurrence: None)
  Receive Date: 20130102
  Receipt Date: 20130102
  Transmission Date: 20140127
  Serious: Yes (Other)
  Sender: FDA-Public Use
  Company Number: VAL_00915_2012

PATIENT
  Sex: Female

DRUGS (1)
  1. PARLODEL [Suspect]
     Indication: LACTATION INHIBITION THERAPY
     Dosage: (DF)

REACTIONS (2)
  - Hypertension [None]
  - Eclampsia [None]
